FAERS Safety Report 6829734-6 (Version None)
Quarter: 2010Q3

REPORT INFORMATION
  Report Type: 
  Country: None (occurrence: None)
  Receive Date: 20100709
  Receipt Date: 20070609
  Transmission Date: 20110219
  Serious: Yes (Other)
  Sender: FDA-Public Use
  Company Number: US-PFIZER INC-2007005949

PATIENT
  Sex: Female
  Weight: 70.3 kg

DRUGS (6)
  1. VARENICLINE [Suspect]
     Indication: SMOKING CESSATION THERAPY
     Dates: start: 20070113
  2. PREVACID [Concomitant]
  3. MS CONTIN [Concomitant]
  4. LYRICA [Concomitant]
  5. PREMARIN [Concomitant]
  6. DAYPRO [Concomitant]

REACTIONS (6)
  - ABDOMINAL PAIN UPPER [None]
  - GASTROOESOPHAGEAL REFLUX DISEASE [None]
  - HIATUS HERNIA [None]
  - IMPAIRED GASTRIC EMPTYING [None]
  - INSOMNIA [None]
  - OESOPHAGITIS [None]
